FAERS Safety Report 8178115-4 (Version None)
Quarter: 2012Q1

REPORT INFORMATION
  Report Type: 
  Country: None (occurrence: None)
  Receive Date: 20120301
  Receipt Date: 20120220
  Transmission Date: 20120608
  Serious: Yes (Other)
  Sender: FDA-Public Use
  Company Number: FR-BAYER-2012-016896

PATIENT
  Age: 27 Year
  Sex: Female

DRUGS (2)
  1. CLOTRIMAZOLE [Suspect]
     Indication: VULVOVAGINAL BURNING SENSATION
  2. CLOTRIMAZOLE [Suspect]
     Indication: VULVOVAGINAL PRURITUS
     Dosage: UNK
     Route: 067
     Dates: start: 20120215, end: 20120217

REACTIONS (2)
  - VAGINAL DISCHARGE [None]
  - VAGINAL HAEMORRHAGE [None]
